FAERS Safety Report 18390626 (Version 13)
Quarter: 2022Q4

REPORT INFORMATION
  Report Type: Report from Study
  Country: BE (occurrence: BE)
  Receive Date: 20201015
  Receipt Date: 20221208
  Transmission Date: 20230112
  Serious: Yes (Life-Threatening, Hospitalization, Disabling, Other)
  Sender: FDA-Public Use
  Company Number: BE-BOEHRINGERINGELHEIM-2020-BI-019051

PATIENT
  Age: 38 Year
  Sex: Male
  Weight: 60 kg

DRUGS (8)
  1. NINTEDANIB [Suspect]
     Active Substance: NINTEDANIB
     Indication: Systemic sclerosis pulmonary
     Route: 048
     Dates: start: 20160719, end: 20201005
  2. NINTEDANIB [Suspect]
     Active Substance: NINTEDANIB
     Indication: Interstitial lung disease
     Route: 048
     Dates: start: 20201120, end: 20201212
  3. PANTOMED [Concomitant]
     Indication: Oesophagitis
     Route: 048
     Dates: start: 20130402
  4. PANTOMED [Concomitant]
     Indication: Gastrooesophageal reflux disease
     Route: 048
     Dates: start: 20191024
  5. AMLODIPINE [Concomitant]
     Active Substance: AMLODIPINE BESYLATE
     Indication: Angiopathy
     Route: 048
     Dates: start: 20170402
  6. LOPERAMIDE [Concomitant]
     Active Substance: LOPERAMIDE
     Indication: Diarrhoea
     Route: 048
     Dates: start: 20180917
  7. MOTILIUM [Concomitant]
     Active Substance: DOMPERIDONE
     Indication: Gastrooesophageal reflux disease
     Route: 048
     Dates: start: 20200821
  8. AUGMENTIN [Concomitant]
     Active Substance: AMOXICILLIN\CLAVULANATE POTASSIUM
     Indication: Prophylaxis
     Route: 042
     Dates: start: 20201005, end: 20201007

REACTIONS (3)
  - Pulmonary hypertension [Recovered/Resolved with Sequelae]
  - Interstitial lung disease [Recovered/Resolved with Sequelae]
  - Pulmonary embolism [Recovered/Resolved]

NARRATIVE: CASE EVENT DATE: 20191015
